FAERS Safety Report 20004880 (Version 1)
Quarter: 2021Q4

REPORT INFORMATION
  Report Type: Spontaneous
  Country: US (occurrence: US)
  Receive Date: 20211027
  Receipt Date: 20211027
  Transmission Date: 20220304
  Serious: No
  Sender: FDA-Public Use
  Company Number: US-PERRIGO-21US000736

PATIENT

DRUGS (1)
  1. NICOTINE POLACRILEX [Suspect]
     Active Substance: NICOTINE
     Indication: Smoking cessation therapy
     Dosage: 4 MG, EVERY 5 MINTUTES
     Route: 002
     Dates: start: 20210104

REACTIONS (2)
  - Nicotine dependence [Unknown]
  - Overdose [Unknown]

NARRATIVE: CASE EVENT DATE: 20210101
